FAERS Safety Report 20336618 (Version 2)
Quarter: 2022Q1

REPORT INFORMATION
  Report Type: Spontaneous
  Country: US (occurrence: US)
  Receive Date: 20220114
  Receipt Date: 20220214
  Transmission Date: 20220423
  Serious: Yes (Other)
  Sender: FDA-Public Use
  Company Number: US-009507513-2201USA002179

PATIENT
  Age: 55 Year
  Sex: Female
  Weight: 52.2 kg

DRUGS (21)
  1. INVANZ [Suspect]
     Active Substance: ERTAPENEM SODIUM
     Indication: Antimicrobial susceptibility test
     Dosage: 1 GRAM; 32 HOURS AFTER ED PRESENTATION
  2. INVANZ [Suspect]
     Active Substance: ERTAPENEM SODIUM
     Indication: Urinary tract infection bacterial
  3. GABAPENTIN [Concomitant]
     Active Substance: GABAPENTIN
  4. BUPROPION [Concomitant]
     Active Substance: BUPROPION
  5. ESCITALOPRAM [Concomitant]
     Active Substance: ESCITALOPRAM OXALATE
  6. MEMANTINE [Concomitant]
     Active Substance: MEMANTINE
  7. MODAFINIL [Concomitant]
     Active Substance: MODAFINIL
  8. BACLOFEN [Concomitant]
     Active Substance: BACLOFEN
     Dosage: 40 MILLIGRAM, QD; WITH THE ABILITY TO TAKE UP TO 60 MG QD AS NEEDED
  9. LUBIPROSTONE [Concomitant]
     Active Substance: LUBIPROSTONE
  10. DALFAMPRIDINE [Concomitant]
     Active Substance: DALFAMPRIDINE
  11. ASCORBIC ACID [Concomitant]
     Active Substance: ASCORBIC ACID
  12. CEPHALEXIN [Concomitant]
     Active Substance: CEPHALEXIN
  13. CHOLECALCIFEROL [Concomitant]
     Active Substance: CHOLECALCIFEROL
  14. CRANBERRY [Concomitant]
     Active Substance: CRANBERRY
  15. DESMOPRESSIN [Concomitant]
     Active Substance: DESMOPRESSIN
  16. ACETAMINOPHEN\HYDROCODONE [Concomitant]
     Active Substance: ACETAMINOPHEN\HYDROCODONE
  17. OCRELIZUMAB [Concomitant]
     Active Substance: OCRELIZUMAB
  18. ONDANSETRON [Concomitant]
     Active Substance: ONDANSETRON
  19. OXYBUTYNIN [Concomitant]
     Active Substance: OXYBUTYNIN
  20. TRAZODONE [Concomitant]
     Active Substance: TRAZODONE HYDROCHLORIDE
  21. VITAMIN E\VITAMINS [Concomitant]
     Active Substance: .ALPHA.-TOCOPHEROL\VITAMINS

REACTIONS (1)
  - Encephalopathy [Recovering/Resolving]
